FAERS Safety Report 4512604-6 (Version None)
Quarter: 2004Q4

REPORT INFORMATION
  Report Type: 
  Country: None (occurrence: None)
  Receive Date: 20041129
  Receipt Date: 20041119
  Transmission Date: 20050328
  Serious: Yes (Life-Threatening)
  Sender: FDA-Public Use
  Company Number: GB-MERCK-0411GBR00192

PATIENT
  Age: 75 Year
  Sex: Male
  Weight: 80 kg

DRUGS (10)
  1. VIOXX [Suspect]
     Indication: BACK PAIN
     Route: 048
     Dates: start: 20030901, end: 20040918
  2. ASPIRIN [Concomitant]
     Indication: MYOCARDIAL INFARCTION
     Route: 048
  3. ATENOLOL [Concomitant]
     Indication: PAIN
     Route: 048
  4. ATENOLOL [Concomitant]
     Indication: HYPERTENSION
     Route: 048
  5. ENALAPRIL MALEATE [Concomitant]
     Indication: HYPERTENSION
     Route: 048
  6. SIMVASTATIN [Concomitant]
     Indication: MYOCARDIAL INFARCTION
     Route: 048
  7. QUININE [Concomitant]
     Indication: MUSCLE CRAMP
     Route: 048
  8. BENDROFLUMETHIAZIDE [Concomitant]
     Indication: HYPERTENSION
     Route: 048
  9. ACETAMINOPHEN AND CODEINE PHOSPHATE [Concomitant]
     Route: 048
  10. DIHYDROCODEINE [Concomitant]
     Route: 048

REACTIONS (3)
  - ATRIAL FLUTTER [None]
  - MYOCARDIAL INFARCTION [None]
  - PAIN [None]
